FAERS Safety Report 11074355 (Version 1)
Quarter: 2015Q2

REPORT INFORMATION
  Report Type: Spontaneous
  Country: CN (occurrence: None)
  Receive Date: 20150427
  Receipt Date: 20150427
  Transmission Date: 20150821
  Serious: Yes (Life-Threatening, Hospitalization, Other)
  Sender: FDA-Public Use
  Company Number: 2015AKN00233

PATIENT
  Age: 43 Year
  Sex: Male

DRUGS (8)
  1. ISONIAZID. [Suspect]
     Active Substance: ISONIAZID
     Indication: MENINGITIS TUBERCULOUS
     Dates: start: 201201
  2. ISONIAZID. [Suspect]
     Active Substance: ISONIAZID
     Indication: CENTRAL NERVOUS SYSTEM INFECTION
     Dates: start: 201201
  3. PYRAZINAMIDE (PYRAZINAMIDE) [Suspect]
     Active Substance: PYRAZINAMIDE
     Indication: MENINGITIS TUBERCULOUS
     Dates: start: 201201
  4. RIFAMPIN (RIFAMPIN) UNKNOWN [Suspect]
     Active Substance: RIFAMPIN
     Indication: MENINGITIS TUBERCULOUS
     Dates: start: 201201
  5. PYRAZINAMIDE (PYRAZINAMIDE) [Suspect]
     Active Substance: PYRAZINAMIDE
     Indication: CENTRAL NERVOUS SYSTEM INFECTION
     Dates: start: 201201
  6. ETHAMBUTOL [Suspect]
     Active Substance: ETHAMBUTOL HYDROCHLORIDE
     Indication: CENTRAL NERVOUS SYSTEM INFECTION
  7. RIFAMPIN (RIFAMPIN) UNKNOWN [Suspect]
     Active Substance: RIFAMPIN
     Indication: CENTRAL NERVOUS SYSTEM INFECTION
     Dates: start: 201201
  8. ETHAMBUTOL [Suspect]
     Active Substance: ETHAMBUTOL HYDROCHLORIDE
     Indication: MENINGITIS TUBERCULOUS

REACTIONS (8)
  - Respiratory arrest [None]
  - Eosinophilic myocarditis [None]
  - Electrocardiogram T wave inversion [None]
  - Pericardial effusion [None]
  - Cardiac arrest [None]
  - Heart injury [None]
  - Electrocardiogram T wave amplitude decreased [None]
  - Hepatic function abnormal [None]

NARRATIVE: CASE EVENT DATE: 2012
